FAERS Safety Report 6489570-X (Version None)
Quarter: 2009Q4

REPORT INFORMATION
  Report Type: 
  Country: None (occurrence: None)
  Receive Date: 20091210
  Receipt Date: 20091130
  Transmission Date: 20100525
  Serious: Yes (Hospitalization)
  Sender: FDA-Public Use
  Company Number: IT-SANOFI-AVENTIS-2009SA006363

PATIENT
  Age: 78 Year
  Sex: Male

DRUGS (5)
  1. LEUPRORELIN ACETATE [Suspect]
     Indication: PROSTATE CANCER
     Route: 058
     Dates: start: 20090914, end: 20090914
  2. AMLODIPINE [Concomitant]
     Route: 048
     Dates: start: 20050101
  3. TRANDOLAPRIL [Concomitant]
     Route: 048
     Dates: start: 20050101
  4. CARBIDOPA-LEVODOPA [Concomitant]
     Indication: PARKINSON'S DISEASE
     Route: 048
     Dates: start: 20060101
  5. CARBIDOPA/ENTACAPONE/LEVODOPA [Concomitant]
     Indication: PARKINSON'S DISEASE
     Route: 048
     Dates: start: 20060101

REACTIONS (1)
  - MELAENA [None]
